FAERS Safety Report 4498878-9 (Version None)
Quarter: 2004Q4

REPORT INFORMATION
  Report Type: 
  Country: None (occurrence: None)
  Receive Date: 20041108
  Receipt Date: 20041021
  Transmission Date: 20050328
  Serious: Yes (Life-Threatening)
  Sender: FDA-Public Use
  Company Number: A06200400288

PATIENT
  Age: 41 Year
  Sex: Female

DRUGS (1)
  1. ELOXATIN - (OXALIPLATIN) - POWDER - 100 MG [Suspect]
     Indication: COLON CANCER
     Dosage: 85 MG/M2 Q2W
     Route: 042
     Dates: start: 20040929, end: 20040929

REACTIONS (6)
  - ABDOMINAL PAIN UPPER [None]
  - ANGIONEUROTIC OEDEMA [None]
  - BRONCHOSPASM [None]
  - FACE OEDEMA [None]
  - LARYNGOSPASM [None]
  - RASH [None]
